FAERS Safety Report 8830360 (Version 1)
Quarter: 2012Q4

REPORT INFORMATION
  Report Type: 
  Country: US (occurrence: US)
  Receive Date: 20121009
  Receipt Date: 20121009
  Transmission Date: 20130627
  Serious: No
  Sender: FDA-Public Use
  Company Number: US-PFIZER INC-2012245892

PATIENT
  Sex: Male

DRUGS (2)
  1. NORVASC [Suspect]
     Dosage: UNK
     Dates: start: 20080901, end: 20120928
  2. ACCUPRIL [Suspect]
     Dosage: UNK
     Dates: start: 20080901, end: 20120928

REACTIONS (2)
  - Headache [Unknown]
  - Hypertension [Unknown]
